FAERS Safety Report 13313055 (Version 2)
Quarter: 2017Q1

REPORT INFORMATION
  Report Type: Spontaneous
  Country: US (occurrence: US)
  Receive Date: 20170309
  Receipt Date: 20170320
  Transmission Date: 20170428
  Serious: Yes (Other)
  Sender: FDA-Public Use
  Company Number: US-PFIZER INC-2017085361

PATIENT
  Age: 85 Year
  Sex: Female
  Weight: 74 kg

DRUGS (7)
  1. VITAMIN D /00107901/ [Concomitant]
     Active Substance: ERGOCALCIFEROL
     Dosage: UNK
  2. COREG [Suspect]
     Active Substance: CARVEDILOL
     Indication: BLOOD PRESSURE MEASUREMENT
     Dosage: 60 MG, UNK
     Route: 065
  3. COZAAR [Suspect]
     Active Substance: LOSARTAN POTASSIUM
     Dosage: 100 MG, UNK
  4. COQ [Concomitant]
     Dosage: UNK
  5. CALAN [Suspect]
     Active Substance: VERAPAMIL HYDROCHLORIDE
     Dosage: 240 MG, UNK
     Route: 065
  6. ELIQUIS [Suspect]
     Active Substance: APIXABAN
     Indication: BLOOD PRESSURE MEASUREMENT
     Dosage: 5 MG, BID
     Route: 048
     Dates: start: 20160216
  7. CEREFOLIN NAC /06235601/ [Concomitant]
     Dosage: UNK

REACTIONS (4)
  - Cardiomyopathy [Unknown]
  - Haemorrhage [Unknown]
  - Scleral haemorrhage [Unknown]
  - Angiopathy [Unknown]

NARRATIVE: CASE EVENT DATE: 20161127
